FAERS Safety Report 14591334 (Version 1)
Quarter: 2018Q1

REPORT INFORMATION
  Report Type: Spontaneous
  Country: US (occurrence: US)
  Receive Date: 20180301
  Receipt Date: 20180301
  Transmission Date: 20180509
  Serious: Yes (Hospitalization)
  Sender: FDA-Public Use
  Company Number: None

PATIENT
  Age: 11 Year
  Sex: Female

DRUGS (1)
  1. NORDITROPIN [Suspect]
     Active Substance: SOMATROPIN
     Indication: BLOOD OESTROGEN INCREASED
     Dosage: INJECT 1.3 MG MON-SAT FOR DAYS SUBCUTANEOUS
     Route: 058

REACTIONS (1)
  - Eating disorder [None]

NARRATIVE: CASE EVENT DATE: 20180128
